FAERS Safety Report 5284310-4 (Version None)
Quarter: 2007Q1

REPORT INFORMATION
  Report Type: 
  Country: None (occurrence: None)
  Receive Date: 20070330
  Receipt Date: 20070330
  Transmission Date: 20070707
  Serious: Yes (Hospitalization)
  Sender: FDA-Public Use
  Company Number: None

PATIENT
  Age: 58 Year
  Sex: Male
  Weight: 81.1939 kg

DRUGS (11)
  1. GLYBURIDE [Suspect]
     Indication: DIABETES MELLITUS
     Dosage: 5 MG BID PO
     Route: 048
     Dates: start: 20070314, end: 20070325
  2. GABAPENTIN [Concomitant]
  3. GLYBURIDE [Concomitant]
  4. LISINOPRIL [Concomitant]
  5. MEFIX [Concomitant]
  6. METHADONE HCL [Concomitant]
  7. SERTRALINE [Concomitant]
  8. SULFAMETHOXAZOLE [Concomitant]
  9. TERAZOSIN HCL [Concomitant]
  10. WARFARIN SODIUM [Concomitant]
  11. ALPRAZOLAM [Concomitant]

REACTIONS (3)
  - ASTHENIA [None]
  - HYPOGLYCAEMIA [None]
  - TREMOR [None]
